FAERS Safety Report 19807233 (Version 1)
Quarter: 2021Q3

REPORT INFORMATION
  Report Type: Spontaneous
  Country: US (occurrence: US)
  Receive Date: 20210907
  Receipt Date: 20210907
  Transmission Date: 20211014
  Serious: No
  Sender: FDA-Public Use
  Company Number: None

PATIENT
  Age: 41 Year
  Sex: Female

DRUGS (2)
  1. GAMMAGARD LIQUID [Suspect]
     Active Substance: HUMAN IMMUNOGLOBULIN G
     Indication: CHRONIC INFLAMMATORY DEMYELINATING POLYRADICULONEUROPATHY
     Dosage: ?          OTHER FREQUENCY:EVERY10DAYS ;?
     Route: 042
     Dates: start: 201611
  2. GAMMAGARD LIQUID [Suspect]
     Active Substance: HUMAN IMMUNOGLOBULIN G
     Indication: CHRONIC INFLAMMATORY DEMYELINATING POLYRADICULONEUROPATHY
     Dosage: ?          OTHER FREQUENCY:EVERY10DAYS;?
     Route: 042
     Dates: start: 201611

REACTIONS (8)
  - Anxiety [None]
  - Swelling face [None]
  - Urticaria [None]
  - Pruritus [None]
  - Erythema [None]
  - Lip swelling [None]
  - Infusion related reaction [None]
  - Hyperventilation [None]

NARRATIVE: CASE EVENT DATE: 20210823
